FAERS Safety Report 19260020 (Version 2)
Quarter: 2021Q2

REPORT INFORMATION
  Report Type: Spontaneous
  Country: US (occurrence: US)
  Receive Date: 20210514
  Receipt Date: 20210609
  Transmission Date: 20210717
  Serious: No
  Sender: FDA-Public Use
  Company Number: US-MYLANLABS-2021M1026969

PATIENT
  Sex: Male

DRUGS (1)
  1. SCOPOLAMINE TRANSDERMAL SYSTEM [Suspect]
     Active Substance: SCOPOLAMINE
     Indication: VERTIGO
     Dosage: 1 MILLIGRAM, Q3D
     Route: 062
     Dates: start: 2021

REACTIONS (3)
  - Product adhesion issue [Recovered/Resolved]
  - Wrong technique in product usage process [Unknown]
  - Off label use [Not Recovered/Not Resolved]

NARRATIVE: CASE EVENT DATE: 2021
